FAERS Safety Report 24075458 (Version 1)
Quarter: 2024Q3

REPORT INFORMATION
  Report Type: Spontaneous
  Country: US (occurrence: US)
  Receive Date: 20240710
  Receipt Date: 20240710
  Transmission Date: 20241017
  Serious: Yes (Death, Hospitalization, Other)
  Sender: DR REDDYS
  Company Number: US-DRL-USA-LIT/USA/24/0009822

PATIENT
  Age: 42 Year
  Sex: Female

DRUGS (11)
  1. VASOPRESSIN [Suspect]
     Active Substance: VASOPRESSIN
     Indication: Septic shock
  2. HEPARIN [Suspect]
     Active Substance: HEPARIN SODIUM
     Indication: Embolism venous
  3. NOREPINEPHRINE [Suspect]
     Active Substance: NOREPINEPHRINE\NOREPINEPHRINE BITARTRATE
     Indication: Septic shock
  4. DOBUTAMINE [Suspect]
     Active Substance: DOBUTAMINE HYDROCHLORIDE
     Indication: Septic shock
  5. CEFEPIME [Suspect]
     Active Substance: CEFEPIME HYDROCHLORIDE
     Indication: Antibiotic therapy
  6. VANCOMYCIN [Suspect]
     Active Substance: VANCOMYCIN
     Indication: Antibiotic therapy
  7. METRONIDAZOLE [Suspect]
     Active Substance: METRONIDAZOLE
     Indication: Antibiotic therapy
  8. LINEZOLID [Suspect]
     Active Substance: LINEZOLID
     Indication: Antibiotic therapy
  9. LINEZOLID [Suspect]
     Active Substance: LINEZOLID
     Indication: Beta haemolytic streptococcal infection
  10. MEROPENEM [Suspect]
     Active Substance: MEROPENEM
     Indication: Antibiotic therapy
  11. MEROPENEM [Suspect]
     Active Substance: MEROPENEM
     Indication: Beta haemolytic streptococcal infection

REACTIONS (7)
  - Drug ineffective [Fatal]
  - Staphylococcal infection [Fatal]
  - Metabolic encephalopathy [Fatal]
  - Condition aggravated [Fatal]
  - Acute kidney injury [Fatal]
  - Haemodynamic instability [Fatal]
  - Multiple organ dysfunction syndrome [Fatal]
